FAERS Safety Report 9067565 (Version 3)
Quarter: 2013Q2

REPORT INFORMATION
  Report Type: Spontaneous
  Country: US (occurrence: US)
  Receive Date: 20130214
  Receipt Date: 20130618
  Transmission Date: 20140414
  Serious: Yes (Other)
  Sender: FDA-Public Use
  Company Number: US-UCBSA-078137

PATIENT
  Age: 73 Year
  Sex: Female

DRUGS (1)
  1. CIMZIA [Suspect]
     Indication: RHEUMATOID ARTHRITIS
     Dosage: 400 MG EVERY 2 WEEKS FOR INDUCTION; THEN 200 MG EVERY 2 WEEKS FOR MAINTENANCE
     Dates: start: 20120909, end: 201302

REACTIONS (1)
  - Urticaria [Recovered/Resolved]
